FAERS Safety Report 8432317-8 (Version None)
Quarter: 2012Q2

REPORT INFORMATION
  Report Type: 
  Country: None (occurrence: None)
  Receive Date: 20120613
  Receipt Date: 20120610
  Transmission Date: 20120825
  Serious: Yes (Life-Threatening, Hospitalization)
  Sender: FDA-Public Use
  Company Number: PHHY2012JO048284

PATIENT
  Age: 16 Year
  Sex: Female

DRUGS (3)
  1. TEGRETOL [Suspect]
     Indication: DEPRESSION
     Dosage: 40 DF, UNK
     Route: 048
  2. IBUPROFEN [Suspect]
     Indication: DEPRESSION
     Dosage: 6 DF, UNK
     Route: 048
  3. SEROQUEL [Suspect]
     Indication: DEPRESSION
     Dosage: 6 DF, UNK
     Route: 048

REACTIONS (4)
  - DISORIENTATION [None]
  - SOMNOLENCE [None]
  - COMA [None]
  - SUICIDE ATTEMPT [None]
